FAERS Safety Report 16661700 (Version 2)
Quarter: 2019Q3

REPORT INFORMATION
  Report Type: Spontaneous
  Country: US (occurrence: US)
  Receive Date: 20190802
  Receipt Date: 20190909
  Transmission Date: 20191004
  Serious: Yes (Other)
  Sender: FDA-Public Use
  Company Number: US-PFIZER INC-2019326167

PATIENT
  Age: 93 Year
  Sex: Female
  Weight: 73 kg

DRUGS (3)
  1. IBRANCE [Suspect]
     Active Substance: PALBOCICLIB
     Dosage: UNK, CYCLIC (ON IT FOR 13-14 CYCLES)
  2. IBRANCE [Suspect]
     Active Substance: PALBOCICLIB
     Dosage: 100 MG, CYCLIC (ONCE A DAY- 3 WEEKS OFF ON WEEK)
  3. GABAPENTIN. [Concomitant]
     Active Substance: GABAPENTIN
     Dosage: UNK
     Dates: start: 200708, end: 201508

REACTIONS (3)
  - Spinal fracture [Unknown]
  - Pain [Not Recovered/Not Resolved]
  - Tremor [Unknown]
